FAERS Safety Report 10061139 (Version 3)
Quarter: 2014Q4

REPORT INFORMATION
  Report Type: Spontaneous
  Country: US (occurrence: US)
  Receive Date: 20140406
  Receipt Date: 20141019
  Transmission Date: 20150528
  Serious: Yes (Death)
  Sender: FDA-Public Use
  Company Number: US-BRISTOL-MYERS SQUIBB COMPANY-20588430

PATIENT
  Age: 73 Year
  Sex: Male

DRUGS (15)
  1. CENTRUM [Concomitant]
     Active Substance: VITAMINS
     Dosage: 1DF=1 TAB EVERY MORNING
     Route: 048
  2. COLACE [Concomitant]
     Active Substance: DOCUSATE SODIUM
     Dosage: 1 CAP EVERY MORNING
     Route: 048
  3. METOPROLOL [Concomitant]
     Active Substance: METOPROLOL
     Dosage: 1DF=25MG.1 1/2 EXTENDED RELEASE TABLET
     Route: 048
  4. COMBIVENT [Concomitant]
     Active Substance: ALBUTEROL SULFATE\IPRATROPIUM BROMIDE
     Dosage: 1DF=2 PUFFS (103 MCG-L18 MCG/INH)
     Route: 055
  5. DIGOXIN. [Concomitant]
     Active Substance: DIGOXIN
     Dosage: EVERY EVENING
     Route: 048
  6. COZAAR [Concomitant]
     Active Substance: LOSARTAN POTASSIUM
     Dosage: TAB EVERY EVENING
     Route: 048
  7. ASPIRIN. [Concomitant]
     Active Substance: ASPIRIN
     Dosage: TAB EVERY MORNING
     Route: 048
  8. POTASSIUM CHLORIDE. [Concomitant]
     Active Substance: POTASSIUM CHLORIDE
     Dosage: 1 EXTENDED RELEASE CAP ORAL EVERY DAY AS NEEDED
  9. TORSEMIDE. [Concomitant]
     Active Substance: TORSEMIDE
     Dosage: 2 TAB IN MORNING AND 1 TAB IN EVENING
     Route: 048
  10. VYTORIN [Concomitant]
     Active Substance: EZETIMIBE\SIMVASTATIN
     Dosage: 1DF=10MG-40MG. 1 TAB EVERY NIGHT
     Route: 048
  11. LACTULOSE. [Concomitant]
     Active Substance: LACTULOSE
     Indication: CONSTIPATION
     Route: 048
  12. OXYGEN. [Concomitant]
     Active Substance: OXYGEN
     Route: 045
  13. BYETTA [Suspect]
     Active Substance: EXENATIDE
     Dosage: 250MG/1.2ML
     Route: 058
     Dates: start: 20090122, end: 20120227
  14. PANTOPRAZOLE [Concomitant]
     Active Substance: PANTOPRAZOLE SODIUM
     Dosage: ENTERIC COATED TABLET
     Route: 048
  15. ALLOPURINOL. [Concomitant]
     Active Substance: ALLOPURINOL
     Dosage: EVERY MORNING
     Route: 048

REACTIONS (1)
  - Pancreatic carcinoma [Fatal]

NARRATIVE: CASE EVENT DATE: 20120221
